FAERS Safety Report 17539435 (Version 5)
Quarter: 2021Q2

REPORT INFORMATION
  Report Type: Spontaneous
  Country: US (occurrence: US)
  Receive Date: 20200313
  Receipt Date: 20210426
  Transmission Date: 20210716
  Serious: No
  Sender: FDA-Public Use
  Company Number: US-PFIZER INC-2020082451

PATIENT
  Age: 75 Year
  Sex: Female
  Weight: 48.53 kg

DRUGS (2)
  1. PREMARIN [Suspect]
     Active Substance: ESTROGENS, CONJUGATED
     Indication: BLADDER DISORDER
     Dosage: 0.5 G, 2X/WEEK (0.5 GM 2 TIMES PER WEEK 90 DAYS)
     Route: 067
  2. PREMARIN [Suspect]
     Active Substance: ESTROGENS, CONJUGATED
     Indication: ATROPHIC VULVOVAGINITIS
     Dosage: 0.625 MG INSERT A SMALL AMOUNT WITH APPLICATOR TWICE A WEEK
     Route: 067

REACTIONS (3)
  - Intentional product misuse [Unknown]
  - Product prescribing error [Unknown]
  - Confusional state [Unknown]
